FAERS Safety Report 7428900-9 (Version None)
Quarter: 2011Q2

REPORT INFORMATION
  Report Type: 
  Country: None (occurrence: None)
  Receive Date: 20110421
  Receipt Date: 20110408
  Transmission Date: 20111010
  Serious: Yes (Other)
  Sender: FDA-Public Use
  Company Number: DK-JNJFOC-20110312024

PATIENT
  Age: 36 Year
  Sex: Female

DRUGS (2)
  1. ASACOL [Concomitant]
     Route: 048
  2. REMICADE [Suspect]
     Indication: COLITIS ULCERATIVE
     Route: 042

REACTIONS (2)
  - DRUG EXPOSURE BEFORE PREGNANCY [None]
  - ABORTION SPONTANEOUS [None]
